FAERS Safety Report 8822169 (Version 1)
Quarter: 2012Q4

REPORT INFORMATION
  Report Type: 
  Country: DE (occurrence: DE)
  Receive Date: 20121003
  Receipt Date: 20121003
  Transmission Date: 20130627
  Serious: Yes (Hospitalization)
  Sender: FDA-Public Use
  Company Number: DE-JNJFOC-20120801579

PATIENT
  Age: 25 Year
  Sex: Male

DRUGS (3)
  1. RISPERDAL CONSTA [Suspect]
     Indication: SCHIZOPHRENIA, PARANOID TYPE
     Route: 030
  2. DIPIPERON [Concomitant]
     Indication: PRODUCT USED FOR UNKNOWN INDICATION
     Route: 065
  3. VALPROAT [Concomitant]
     Route: 065

REACTIONS (3)
  - Hospitalisation [Recovered/Resolved]
  - Device malfunction [Recovered/Resolved]
  - Foreign body [Recovered/Resolved]
